FAERS Safety Report 9345655 (Version 1)
Quarter: 2013Q2

REPORT INFORMATION
  Report Type: Spontaneous
  Country: RU (occurrence: RU)
  Receive Date: 20130613
  Receipt Date: 20130613
  Transmission Date: 20140414
  Serious: Yes (Other)
  Sender: FDA-Public Use
  Company Number: PHHY2013RU059437

PATIENT
  Age: 25 Year
  Sex: 0

DRUGS (1)
  1. GILENYA [Suspect]
     Dosage: 0.5 MG, QD
     Route: 048
     Dates: start: 20110518

REACTIONS (3)
  - Heart rate abnormal [Unknown]
  - Ventricular parasystole [Unknown]
  - Hypotension [Unknown]
